FAERS Safety Report 7348529-0 (Version None)
Quarter: 2011Q1

REPORT INFORMATION
  Report Type: 
  Country: None (occurrence: None)
  Receive Date: 20110314
  Receipt Date: 20110302
  Transmission Date: 20110831
  Serious: Yes (Hospitalization, Other)
  Sender: FDA-Public Use
  Company Number: BE-BIOGENIDEC-2011BI002179

PATIENT
  Age: 34 Year
  Sex: Female

DRUGS (6)
  1. FERROGRAD [Concomitant]
  2. FORLAX [Concomitant]
  3. TYSABRI [Suspect]
     Indication: RELAPSING-REMITTING MULTIPLE SCLEROSIS
     Route: 042
     Dates: start: 20100603
  4. LORMETAZEPAM [Concomitant]
  5. D-CURE [Concomitant]
  6. PARACETAMOL [Concomitant]
     Indication: PAIN PROPHYLAXIS

REACTIONS (1)
  - HIP FRACTURE [None]
